FAERS Safety Report 5340156-X (Version None)
Quarter: 2007Q2

REPORT INFORMATION
  Report Type: 
  Country: None (occurrence: None)
  Receive Date: 20070531
  Receipt Date: 20070530
  Transmission Date: 20071010
  Serious: Yes (Hospitalization, Congenital Anomaly, Other)
  Sender: FDA-Public Use
  Company Number: A0607123A

PATIENT
  Sex: Female
  Weight: 2.7 kg

DRUGS (5)
  1. PAXIL [Suspect]
     Indication: DEPRESSION
     Dosage: 20MG PER DAY
     Dates: start: 19991115, end: 20000301
  2. WELLBUTRIN SR [Concomitant]
     Indication: DEPRESSION
     Dosage: 150MG PER DAY
     Dates: start: 19991205, end: 20000301
  3. KLONOPIN [Concomitant]
     Indication: DEPRESSION
     Dosage: .5MG TWICE PER DAY
     Dates: start: 19991115, end: 20000301
  4. TAMBOCOR [Concomitant]
     Indication: SUPRAVENTRICULAR TACHYCARDIA
     Dosage: 150MG TWICE PER DAY
     Route: 048
     Dates: start: 19990501, end: 20000301
  5. CARDIAC MEDICATION [Concomitant]

REACTIONS (12)
  - AORTIC STENOSIS [None]
  - BUNDLE BRANCH BLOCK RIGHT [None]
  - CARDIAC MURMUR [None]
  - CARDIOMEGALY [None]
  - CONGENITAL ANOMALY [None]
  - DILATATION VENTRICULAR [None]
  - DRUG EXPOSURE DURING PREGNANCY [None]
  - HEART VALVE INSUFFICIENCY [None]
  - OXYGEN SATURATION DECREASED [None]
  - PECTUS EXCAVATUM [None]
  - TRUNCUS ARTERIOSUS PERSISTENT [None]
  - VENTRICULAR SEPTAL DEFECT [None]
